FAERS Safety Report 14816604 (Version 3)
Quarter: 2018Q3

REPORT INFORMATION
  Report Type: Spontaneous
  Country: DK (occurrence: DK)
  Receive Date: 20180426
  Receipt Date: 20180814
  Transmission Date: 20181010
  Serious: Yes (Hospitalization, Disabling)
  Sender: FDA-Public Use
  Company Number: PHHY2018DK073123

PATIENT
  Age: 72 Year
  Sex: Female

DRUGS (3)
  1. ZOMETA [Suspect]
     Active Substance: ZOLEDRONIC ACID
     Indication: OSTEOPOROSIS PROPHYLAXIS
     Dosage: STYRKE: 4 MG/100 ML6 MONTHS
     Route: 042
     Dates: start: 20160908, end: 201702
  2. ZOMETA [Suspect]
     Active Substance: ZOLEDRONIC ACID
     Dosage: STYRKE: 4 MG/100 ML.
     Route: 042
     Dates: start: 20170201, end: 20170830
  3. ALENDRONATE [Suspect]
     Active Substance: ALENDRONATE SODIUM
     Indication: OSTEOPOROSIS PROPHYLAXIS
     Dosage: STYRKE: 70 MG. QW
     Route: 048
     Dates: start: 20160901, end: 20170830

REACTIONS (4)
  - Osteonecrosis of jaw [Not Recovered/Not Resolved]
  - Soft tissue infection [Not Recovered/Not Resolved]
  - Osteomyelitis [Not Recovered/Not Resolved]
  - Exposed bone in jaw [Unknown]

NARRATIVE: CASE EVENT DATE: 20170907
